FAERS Safety Report 10453819 (Version 1)
Quarter: 2014Q3

REPORT INFORMATION
  Report Type: Spontaneous
  Country: US (occurrence: US)
  Receive Date: 20140915
  Receipt Date: 20140915
  Transmission Date: 20150326
  Serious: No
  Sender: FDA-Public Use
  Company Number: US-BRISTOL-MYERS SQUIBB COMPANY-21292909

PATIENT
  Age: 67 Year
  Sex: Male

DRUGS (9)
  1. APIXABAN [Suspect]
     Active Substance: APIXABAN
     Indication: CEREBROVASCULAR ACCIDENT PROPHYLAXIS
     Dates: start: 201407
  2. MONTELUKAST [Concomitant]
     Active Substance: MONTELUKAST SODIUM
  3. GLIMEPIRIDE. [Concomitant]
     Active Substance: GLIMEPIRIDE
  4. CARVEDILOL. [Concomitant]
     Active Substance: CARVEDILOL
  5. FUROSEMIDE. [Concomitant]
     Active Substance: FUROSEMIDE
  6. MICARDIS [Concomitant]
     Active Substance: TELMISARTAN
  7. METOLAZONE. [Concomitant]
     Active Substance: METOLAZONE
  8. DIGOXIN. [Concomitant]
     Active Substance: DIGOXIN
  9. LEVOTHYROXINE [Concomitant]
     Active Substance: LEVOTHYROXINE

REACTIONS (1)
  - Abdominal pain upper [Unknown]
